FAERS Safety Report 4564792-3 (Version None)
Quarter: 2005Q1

REPORT INFORMATION
  Report Type: 
  Country: None (occurrence: None)
  Receive Date: 20050128
  Receipt Date: 20050125
  Transmission Date: 20050727
  Serious: Yes (Hospitalization)
  Sender: FDA-Public Use
  Company Number: CH-MERCK-0501CHE00029

PATIENT
  Sex: Female

DRUGS (1)
  1. INDOCIN [Suspect]
     Route: 048
     Dates: start: 20050111, end: 20050111

REACTIONS (4)
  - EYE SWELLING [None]
  - HYPOACUSIS [None]
  - RASH [None]
  - SWOLLEN TONGUE [None]
